FAERS Safety Report 10687595 (Version 1)
Quarter: 2014Q4

REPORT INFORMATION
  Report Type: Spontaneous
  Country: US (occurrence: None)
  Receive Date: 20141231
  Receipt Date: 20141231
  Transmission Date: 20150529
  Serious: Yes (Hospitalization, Disabling)
  Sender: FDA-Public Use
  Company Number: None

PATIENT
  Age: 12 Year
  Sex: Female
  Weight: 31.75 kg

DRUGS (1)
  1. GOLYTELY [Suspect]
     Active Substance: POLYETHYLENE GLYCOL 3350\POTASSIUM CHLORIDE\SODIUM BICARBONATE\SODIUM CHLORIDE\SODIUM SULFATE ANHYDROUS
     Indication: CONSTIPATION
     Route: 048
     Dates: start: 20141104, end: 20141208

REACTIONS (6)
  - Cardiac murmur [None]
  - Hypersensitivity [None]
  - Infrequent bowel movements [None]
  - Alopecia [None]
  - Accidental overdose [None]
  - Madarosis [None]

NARRATIVE: CASE EVENT DATE: 20141229
